FAERS Safety Report 7243777-2 (Version None)
Quarter: 2011Q1

REPORT INFORMATION
  Report Type: 
  Country: None (occurrence: None)
  Receive Date: 20110125
  Receipt Date: 20110117
  Transmission Date: 20110831
  Serious: Yes (Other)
  Sender: FDA-Public Use
  Company Number: US-PFIZER INC-2011011022

PATIENT
  Age: 40 Year
  Sex: Male

DRUGS (6)
  1. WARFARIN [Concomitant]
     Dosage: UNK
  2. CALCIUM [Concomitant]
     Dosage: UNK
  3. DILANTIN-125 [Suspect]
     Dosage: 200MG PER DAY
  4. DILANTIN-125 [Suspect]
     Dosage: 400MG PER DAY
  5. SIMVASTATIN [Concomitant]
     Dosage: UNK
  6. METOPROLOL [Concomitant]
     Dosage: UNK

REACTIONS (2)
  - SYSTEMIC LUPUS ERYTHEMATOSUS [None]
  - LIVEDO RETICULARIS [None]
